FAERS Safety Report 5079521-7 (Version None)
Quarter: 2006Q3

REPORT INFORMATION
  Report Type: 
  Country: None (occurrence: None)
  Receive Date: 20060814
  Receipt Date: 20051215
  Transmission Date: 20061208
  Serious: No
  Sender: FDA-Public Use
  Company Number: US-BRISTOL-MYERS SQUIBB COMPANY-13217864

PATIENT
  Age: 53 Year
  Sex: Female
  Weight: 127 kg

DRUGS (8)
  1. GLUCOVANCE [Suspect]
     Indication: DIABETES MELLITUS
     Route: 048
     Dates: start: 20030101
  2. LIPITOR [Concomitant]
  3. NORVASC [Concomitant]
  4. ACCUPRIL [Concomitant]
  5. DETROL LA [Concomitant]
  6. CENTRUM [Concomitant]
  7. PREMARIN [Concomitant]
     Indication: GENITAL PRURITUS FEMALE
  8. VITAMIN A AND D [Concomitant]
     Indication: PRURITUS ANI
     Route: 061

REACTIONS (3)
  - DIARRHOEA [None]
  - GENITAL PRURITUS FEMALE [None]
  - PRURITUS ANI [None]
